FAERS Safety Report 9372278 (Version 1)
Quarter: 2013Q2

REPORT INFORMATION
  Report Type: Report from Study
  Country: US (occurrence: US)
  Receive Date: 20130627
  Receipt Date: 20130627
  Transmission Date: 20140414
  Serious: Yes (Death)
  Sender: FDA-Public Use
  Company Number: US-MYLANLABS-2012S1019232

PATIENT
  Age: 46 Year
  Sex: Male

DRUGS (11)
  1. CLOZAPINE TABLETS [Suspect]
     Dates: start: 201205
  2. CLOZAPINE TABLETS [Suspect]
     Dates: start: 201205
  3. ATIVAN [Concomitant]
  4. FLUOXETINE [Concomitant]
  5. SIMVASTATIN [Concomitant]
  6. ASPIRIN (E.C.) [Concomitant]
  7. COUMADIN [Concomitant]
     Dosage: SUNDAY AND THURSDAY
  8. COUMADINE [Concomitant]
     Dosage: MONDAY, TUESDAY, WEDNESDAY, FRIDAY, SATURDAY
  9. IRON [Concomitant]
  10. RANITIDINE [Concomitant]
  11. ABILIFY [Concomitant]

REACTIONS (1)
  - Death [Fatal]
